FAERS Safety Report 9311048 (Version 1)
Quarter: 2013Q1

REPORT INFORMATION
  Report Type: Spontaneous
  Country: GB (occurrence: None)
  Receive Date: 20130114
  Receipt Date: 20130114
  Transmission Date: 20140127
  Serious: No
  Sender: FDA-Public Use
  Company Number: 2008AP002492

PATIENT
  Sex: Female

DRUGS (4)
  1. CARBAMAZEPINE (CARBAMAZEPINE) CHEWABLE TABLET [Suspect]
     Route: 064
  2. CLOBAZAM (CLOBAZAM) [Suspect]
  3. LEVETIRACETAM (LEVETIRACETAM) [Suspect]
  4. TOPAMAX (TOPIRAMATE) [Suspect]

REACTIONS (2)
  - Maternal drugs affecting foetus [None]
  - Developmental hip dysplasia [None]
